FAERS Safety Report 5123792-5 (Version None)
Quarter: 2006Q4

REPORT INFORMATION
  Report Type: 
  Country: None (occurrence: None)
  Receive Date: 20061010
  Receipt Date: 20030919
  Transmission Date: 20070319
  Serious: Yes (Hospitalization)
  Sender: FDA-Public Use
  Company Number: GB-AVENTIS-200319114GDDC

PATIENT
  Age: 81 Year
  Sex: Female

DRUGS (5)
  1. CO-AMILOFRUSE [Suspect]
     Dosage: DOSE: 5/40
     Route: 048
     Dates: start: 20030901, end: 20030901
  2. FLUCLOXACILLIN [Suspect]
     Indication: CELLULITIS
     Dosage: DOSE: UNK
     Route: 048
     Dates: start: 20030901, end: 20030901
  3. ASPIRIN [Concomitant]
     Route: 048
  4. FOSINOPRIL SODIUM [Concomitant]
  5. MEPROBAMATE [Concomitant]

REACTIONS (6)
  - CONFUSIONAL STATE [None]
  - FALL [None]
  - LOSS OF CONSCIOUSNESS [None]
  - PRURITUS [None]
  - RASH GENERALISED [None]
  - VOMITING [None]
